FAERS Safety Report 9105880 (Version 1)
Quarter: 2013Q1

REPORT INFORMATION
  Report Type: Spontaneous
  Country: CA (occurrence: CA)
  Receive Date: 20130220
  Receipt Date: 20130220
  Transmission Date: 20140127
  Serious: Yes (Death, Other)
  Sender: FDA-Public Use
  Company Number: CA-JNJFOC-20130211004

PATIENT
  Age: 50 Year
  Sex: Male

DRUGS (6)
  1. DOXORUBICIN [Suspect]
     Indication: LYMPHOMA
     Route: 042
  2. RITUXIMAB [Suspect]
     Indication: LYMPHOMA
     Route: 065
  3. CYCLOPHOSPHAMIDE [Suspect]
     Indication: LYMPHOMA
     Route: 065
  4. VINCRISTINE [Suspect]
     Indication: LYMPHOMA
     Route: 065
  5. PREDNISOLONE [Suspect]
     Indication: LYMPHOMA
     Route: 065
  6. LAMIVUDINE [Suspect]
     Indication: ANTIVIRAL PROPHYLAXIS
     Dosage: FOR 7 MONTHS DURATION
     Route: 065

REACTIONS (2)
  - Hepatic failure [Fatal]
  - Hepatitis B [Unknown]
